FAERS Safety Report 6346657-X (Version None)
Quarter: 2009Q3

REPORT INFORMATION
  Report Type: 
  Country: None (occurrence: None)
  Receive Date: 20090904
  Receipt Date: 20090821
  Transmission Date: 20100115
  Serious: Yes (Life-Threatening, Hospitalization)
  Sender: FDA-Public Use
  Company Number: 2009-03031

PATIENT
  Age: 75 Year
  Sex: Male
  Weight: 53 kg

DRUGS (5)
  1. VELCADE [Suspect]
     Indication: MULTIPLE MYELOMA
     Dosage: 1.5 MG/M2, INTRAVENOUS
     Route: 042
     Dates: start: 20090507, end: 20090717
  2. VELCADE [Suspect]
  3. VELCADE [Suspect]
  4. CYCLOPHOSPHAMIDE [Concomitant]
  5. PREDNISONE [Concomitant]

REACTIONS (1)
  - VOCAL CORD PARALYSIS [None]
